FAERS Safety Report 21364461 (Version 1)
Quarter: 2022Q3

REPORT INFORMATION
  Report Type: Spontaneous
  Country: US (occurrence: US)
  Receive Date: 20220922
  Receipt Date: 20220922
  Transmission Date: 20221026
  Serious: No
  Sender: FDA-Public Use
  Company Number: US-GLENMARK PHARMACEUTICALS-2022GMK072651

PATIENT

DRUGS (1)
  1. SOLIFENACIN SUCCINATE [Suspect]
     Active Substance: SOLIFENACIN SUCCINATE
     Indication: Product used for unknown indication
     Dosage: UNK
     Route: 065

REACTIONS (4)
  - Glossitis [Unknown]
  - Aphonia [Unknown]
  - Gastrooesophageal reflux disease [Unknown]
  - Vomiting [Unknown]
